FAERS Safety Report 6604544-3 (Version None)
Quarter: 2010Q1

REPORT INFORMATION
  Report Type: 
  Country: None (occurrence: None)
  Receive Date: 20100226
  Receipt Date: 20091119
  Transmission Date: 20100710
  Serious: No
  Sender: FDA-Public Use
  Company Number: A0818131A

PATIENT
  Age: 53 Year
  Sex: Female

DRUGS (2)
  1. LAMICTAL CD [Suspect]
     Dosage: 75MG VARIABLE DOSE
     Route: 048
     Dates: start: 20090917, end: 20091109
  2. CELEXA [Concomitant]

REACTIONS (3)
  - BREAST INFLAMMATION [None]
  - DERMATITIS INFECTED [None]
  - RASH [None]
